FAERS Safety Report 18101490 (Version 1)
Quarter: 2020Q3

REPORT INFORMATION
  Report Type: Spontaneous
  Country: US (occurrence: US)
  Receive Date: 20200801
  Receipt Date: 20200801
  Transmission Date: 20201103
  Serious: Yes (Other)
  Sender: FDA-Public Use
  Company Number: US-SUN PHARMACEUTICAL INDUSTRIES LTD-2019R1-216667

PATIENT
  Sex: Female

DRUGS (4)
  1. MYCOPHENOLATE MOFETIL. [Suspect]
     Active Substance: MYCOPHENOLATE MOFETIL
     Indication: IMMUNE THROMBOCYTOPENIA
     Dosage: 1000 MILLIGRAM, BID
     Route: 065
  2. PREDNISONE. [Suspect]
     Active Substance: PREDNISONE
     Dosage: 5 MILLIGRAM, QOD
     Route: 065
  3. ROMIPLOSTIM [Suspect]
     Active Substance: ROMIPLOSTIM
     Indication: IMMUNE THROMBOCYTOPENIA
     Dosage: 10 MICROGRAM/KILOGRAM Q7 DAYS
     Route: 065
  4. PREDNISONE. [Suspect]
     Active Substance: PREDNISONE
     Indication: IMMUNE THROMBOCYTOPENIA
     Dosage: 20 MILLIGRAM, QD
     Route: 065

REACTIONS (6)
  - Osteonecrosis [Not Recovered/Not Resolved]
  - Drug ineffective [Unknown]
  - Weight increased [Unknown]
  - Oedema peripheral [Unknown]
  - Hypertension [Unknown]
  - Type 2 diabetes mellitus [Unknown]
